FAERS Safety Report 15214459 (Version 3)
Quarter: 2021Q4

REPORT INFORMATION
  Report Type: Spontaneous
  Country: US (occurrence: US)
  Receive Date: 20180730
  Receipt Date: 20211229
  Transmission Date: 20220303
  Serious: Yes (Other)
  Sender: FDA-Public Use
  Company Number: US-PFIZER INC-2018297891

PATIENT
  Age: 29 Year
  Sex: Male

DRUGS (2)
  1. PROPOFOL [Suspect]
     Active Substance: PROPOFOL
     Indication: Sedation
     Dosage: UNK  (AVERAGING 3.5 MG/KG/HR).
  2. FENTANYL [Concomitant]
     Active Substance: FENTANYL
     Indication: Sedation
     Dosage: UNK (INFUSION)

REACTIONS (5)
  - Propofol infusion syndrome [Recovering/Resolving]
  - Rhabdomyolysis [Recovered/Resolved]
  - Renal failure [Not Recovered/Not Resolved]
  - Liver injury [Unknown]
  - Pigment nephropathy [Not Recovered/Not Resolved]
